FAERS Safety Report 21308364 (Version 1)
Quarter: 2022Q3

REPORT INFORMATION
  Report Type: Spontaneous
  Country: US (occurrence: US)
  Receive Date: 20220908
  Receipt Date: 20220908
  Transmission Date: 20221026
  Serious: No
  Sender: FDA-Public Use
  Company Number: US-JNJFOC-20220841219

PATIENT
  Sex: Male

DRUGS (2)
  1. TOPAMAX [Suspect]
     Active Substance: TOPIRAMATE
     Indication: Epilepsy
     Dosage: IT MAY HAVE BEEN BETWEEN 1990 AND 1886 OR EARLIER
     Route: 048
     Dates: end: 2022
  2. TOPAMAX [Suspect]
     Active Substance: TOPIRAMATE
     Indication: Seizure

REACTIONS (6)
  - Amnesia [Unknown]
  - Anxiety [Unknown]
  - Aggression [Unknown]
  - Abnormal behaviour [Unknown]
  - Anger [Unknown]
  - Language disorder [Unknown]
